FAERS Safety Report 8467796-3 (Version None)
Quarter: 2012Q2

REPORT INFORMATION
  Report Type: 
  Country: None (occurrence: None)
  Receive Date: 20120626
  Receipt Date: 20120618
  Transmission Date: 20120825
  Serious: Yes (Hospitalization)
  Sender: FDA-Public Use
  Company Number: US-BAYER-2012-061009

PATIENT
  Age: 30 Year
  Sex: Female

DRUGS (3)
  1. SAFYRAL [Suspect]
  2. NITROFUR [Concomitant]
     Dosage: 100 MG, BID
  3. UROGESIC-BLU [Concomitant]

REACTIONS (1)
  - PULMONARY EMBOLISM [None]
